FAERS Safety Report 13496294 (Version 4)
Quarter: 2017Q2

REPORT INFORMATION
  Report Type: Spontaneous
  Country: US (occurrence: US)
  Receive Date: 20170428
  Receipt Date: 20170515
  Transmission Date: 20170830
  Serious: No
  Sender: FDA-Public Use
  Company Number: US-JAZZ-2017-US-000755

PATIENT
  Age: 36 Year
  Sex: Female

DRUGS (18)
  1. PROBIOTIC                          /06395501/ [Concomitant]
     Active Substance: BIFIDOBACTERIUM ANIMALIS SUBSP. LACTIS
  2. CHOLINE CITRATE [Concomitant]
  3. FISH OIL [Concomitant]
     Active Substance: FISH OIL
  4. IBUPROFEN. [Concomitant]
     Active Substance: IBUPROFEN
  5. LAMOTRIGINE. [Concomitant]
     Active Substance: LAMOTRIGINE
     Indication: BIPOLAR DISORDER
  6. L THEANINE [Concomitant]
  7. VALIUM [Concomitant]
     Active Substance: DIAZEPAM
  8. XYREM [Suspect]
     Active Substance: SODIUM OXYBATE
     Dosage: DOSE ADJUSTMENT
     Route: 048
     Dates: start: 201701
  9. XYREM [Suspect]
     Active Substance: SODIUM OXYBATE
     Indication: NARCOLEPSY
     Dosage: 1.125G, BID
     Route: 048
     Dates: start: 20170109
  10. XYREM [Suspect]
     Active Substance: SODIUM OXYBATE
     Dosage: 4.5 G, QD
     Route: 048
     Dates: start: 20170226
  11. L-TYROSINE [Concomitant]
  12. XYREM [Suspect]
     Active Substance: SODIUM OXYBATE
     Dosage: 4.5G, BID
     Route: 048
     Dates: start: 20170129
  13. XYREM [Suspect]
     Active Substance: SODIUM OXYBATE
     Dosage: 5 G, QD
     Route: 048
     Dates: start: 20170201
  14. NUVIGIL [Concomitant]
     Active Substance: ARMODAFINIL
     Indication: NARCOLEPSY
  15. XYREM [Suspect]
     Active Substance: SODIUM OXYBATE
     Dosage: 4.5 G, QD
     Route: 048
     Dates: start: 20170201
  16. XYREM [Suspect]
     Active Substance: SODIUM OXYBATE
     Dosage: 4.75 G, QD
     Route: 048
     Dates: start: 20170226
  17. DRAMAMINE [Suspect]
     Active Substance: DIMENHYDRINATE
     Indication: NAUSEA
  18. ADDERALL [Suspect]
     Active Substance: AMPHETAMINE ASPARTATE\AMPHETAMINE SULFATE\DEXTROAMPHETAMINE SACCHARATE\DEXTROAMPHETAMINE SULFATE
     Indication: PRODUCT USED FOR UNKNOWN INDICATION

REACTIONS (21)
  - Anorgasmia [Not Recovered/Not Resolved]
  - Viral upper respiratory tract infection [Unknown]
  - Headache [Not Recovered/Not Resolved]
  - Genital disorder female [Not Recovered/Not Resolved]
  - Abdominal discomfort [Unknown]
  - Paranasal sinus hypersecretion [Not Recovered/Not Resolved]
  - Vomiting [Unknown]
  - Nausea [Recovering/Resolving]
  - Incorrect dose administered [Unknown]
  - Impaired driving ability [Not Recovered/Not Resolved]
  - Cognitive disorder [Not Recovered/Not Resolved]
  - Throat irritation [Not Recovered/Not Resolved]
  - Fatigue [Unknown]
  - Dizziness [Not Recovered/Not Resolved]
  - Libido increased [Not Recovered/Not Resolved]
  - Back pain [Unknown]
  - Somnolence [Not Recovered/Not Resolved]
  - Tinnitus [Not Recovered/Not Resolved]
  - Tooth disorder [Unknown]
  - Rhinorrhoea [Not Recovered/Not Resolved]
  - Decreased appetite [Not Recovered/Not Resolved]

NARRATIVE: CASE EVENT DATE: 201701
